FAERS Safety Report 9324829 (Version 3)
Quarter: 2013Q3

REPORT INFORMATION
  Report Type: Report from Study
  Country: UA (occurrence: UA)
  Receive Date: 20130603
  Receipt Date: 20130724
  Transmission Date: 20140515
  Serious: Yes (Other)
  Sender: FDA-Public Use
  Company Number: UA-TEVA-409620USA

PATIENT
  Age: 60 Year
  Sex: Male

DRUGS (3)
  1. BENDAMUSTINE [Suspect]
     Indication: NON-HODGKIN^S LYMPHOMA
     Dosage: 120 MG/M2 DAILY;
     Route: 042
     Dates: start: 20130416
  2. BENDAMUSTINE [Suspect]
     Dosage: 120 MG/M2 DAILY;
     Route: 042
     Dates: start: 20130509
  3. BENDAMUSTINE [Suspect]
     Dosage: 120 MG/M2 DAILY;
     Route: 042
     Dates: start: 20130612

REACTIONS (1)
  - Drug-induced liver injury [Recovered/Resolved]
